FAERS Safety Report 11464196 (Version 1)
Quarter: 2015Q3

REPORT INFORMATION
  Report Type: Spontaneous
  Country: US (occurrence: US)
  Receive Date: 20150831
  Receipt Date: 20150831
  Transmission Date: 20151125
  Serious: No
  Sender: FDA-Public Use
  Company Number: US-ELI_LILLY_AND_COMPANY-US201107004214

PATIENT
  Age: 62 Year
  Sex: Female

DRUGS (23)
  1. LEVOTHYROXINE. [Concomitant]
     Active Substance: LEVOTHYROXINE
     Dosage: 88 UG, UNK
  2. ALPRAZOLAM. [Concomitant]
     Active Substance: ALPRAZOLAM
  3. VITAMIN B12 [Concomitant]
     Active Substance: CYANOCOBALAMIN
  4. AMLODIPINE [Concomitant]
     Active Substance: AMLODIPINE BESYLATE
  5. GEODON [Concomitant]
     Active Substance: ZIPRASIDONE HYDROCHLORIDE\ZIPRASIDONE MESYLATE
  6. CYMBALTA [Suspect]
     Active Substance: DULOXETINE HYDROCHLORIDE
     Dosage: 60 MG, BID
  7. AROMASIN [Concomitant]
     Active Substance: EXEMESTANE
  8. NABUMETONE. [Concomitant]
     Active Substance: NABUMETONE
  9. DEXTROAMPHETAMINE. [Concomitant]
     Active Substance: DEXTROAMPHETAMINE SULFATE
  10. SIMVASTATIN. [Concomitant]
     Active Substance: SIMVASTATIN
  11. FOLIC ACID. [Concomitant]
     Active Substance: FOLIC ACID
  12. FUROSEMIDE. [Concomitant]
     Active Substance: FUROSEMIDE
  13. VITAMIN D [Concomitant]
     Active Substance: CHOLECALCIFEROL
  14. HYDROXYZINE PAMOATE. [Concomitant]
     Active Substance: HYDROXYZINE PAMOATE
  15. METOPROLOL [Concomitant]
     Active Substance: METOPROLOL
  16. CALCIUM [Concomitant]
     Active Substance: CALCIUM
  17. VITAMIN C [Concomitant]
     Active Substance: ASCORBIC ACID
  18. ASPIRIN. [Concomitant]
     Active Substance: ASPIRIN
  19. FISH OIL [Concomitant]
     Active Substance: FISH OIL
  20. CYMBALTA [Suspect]
     Active Substance: DULOXETINE HYDROCHLORIDE
     Indication: DEPRESSION
     Dosage: UNK, UNKNOWN
  21. PANTOPRAZOLE [Concomitant]
     Active Substance: PANTOPRAZOLE SODIUM
  22. MULTIVITAMIN [Concomitant]
     Active Substance: VITAMINS
  23. VITAMIN E [Concomitant]
     Active Substance: .ALPHA.-TOCOPHEROL

REACTIONS (6)
  - Foot deformity [Unknown]
  - Pain in extremity [Unknown]
  - Drug effect incomplete [Not Recovered/Not Resolved]
  - Emotional distress [Not Recovered/Not Resolved]
  - Anxiety [Not Recovered/Not Resolved]
  - Pain [Not Recovered/Not Resolved]

NARRATIVE: CASE EVENT DATE: 201107
